FAERS Safety Report 7798850-7 (Version None)
Quarter: 2011Q4

REPORT INFORMATION
  Report Type: 
  Country: None (occurrence: None)
  Receive Date: 20111006
  Receipt Date: 20110927
  Transmission Date: 20120403
  Serious: Yes (Hospitalization)
  Sender: FDA-Public Use
  Company Number: US-JNJFOC-20110912139

PATIENT
  Sex: Female
  Weight: 77.11 kg

DRUGS (6)
  1. VALIUM [Concomitant]
     Indication: SLEEP DISORDER
     Route: 048
  2. DURAGESIC-100 [Suspect]
     Indication: BACK PAIN
     Route: 062
     Dates: start: 20031101
  3. DURAGESIC-100 [Suspect]
     Indication: NECK PAIN
     Route: 062
     Dates: start: 20031101
  4. DURAGESIC-100 [Suspect]
     Route: 062
  5. PERCOCET [Concomitant]
     Indication: PAIN
     Route: 048
  6. DURAGESIC-100 [Suspect]
     Route: 062

REACTIONS (4)
  - INTERVERTEBRAL DISC DISPLACEMENT [None]
  - WRONG TECHNIQUE IN DRUG USAGE PROCESS [None]
  - PRODUCT QUALITY ISSUE [None]
  - OSTEOARTHRITIS [None]
